FAERS Safety Report 18521085 (Version 1)
Quarter: 2020Q4

REPORT INFORMATION
  Report Type: Report from Study
  Country: None (occurrence: US)
  Receive Date: 20201119
  Receipt Date: 20201119
  Transmission Date: 20210114
  Serious: Yes (Hospitalization)
  Sender: FDA-Public Use
  Company Number: US-ABBVIE-20K-163-3575649-00

PATIENT
  Age: 63 Year
  Sex: Male
  Weight: 79.45 kg

DRUGS (7)
  1. VITAMIN D [Concomitant]
     Active Substance: VITAMIN D NOS
     Indication: SUPPLEMENTATION THERAPY
  2. ENTACAPONE. [Concomitant]
     Active Substance: ENTACAPONE
     Indication: PARKINSON^S DISEASE
  3. LEXAPRO [Concomitant]
     Active Substance: ESCITALOPRAM OXALATE
     Indication: PRODUCT USED FOR UNKNOWN INDICATION
  4. NEUPRO [Concomitant]
     Active Substance: ROTIGOTINE
     Indication: PARKINSON^S DISEASE
     Dosage: PATCH
  5. CARBIDOPA LEVODOPA [Concomitant]
     Active Substance: CARBIDOPA\LEVODOPA
     Indication: PARKINSON^S DISEASE
  6. DUOPA [Suspect]
     Active Substance: CARBIDOPA\LEVODOPA
     Indication: PARKINSON^S DISEASE
     Dosage: 4.63 MG/ML 20 MG/ML
     Route: 050
     Dates: start: 20170802
  7. DUOPA [Suspect]
     Active Substance: CARBIDOPA\LEVODOPA
     Dosage: DOSE INCREASED
     Route: 050
     Dates: start: 201709

REACTIONS (23)
  - Gait inability [Not Recovered/Not Resolved]
  - Device leakage [Recovered/Resolved]
  - Device breakage [Not Recovered/Not Resolved]
  - Rehabilitation therapy [Unknown]
  - Pain [Not Recovered/Not Resolved]
  - Incorrect dose administered by device [Unknown]
  - Device leakage [Not Recovered/Not Resolved]
  - Stoma site discharge [Unknown]
  - Muscle rigidity [Unknown]
  - Mobility decreased [Not Recovered/Not Resolved]
  - Musculoskeletal stiffness [Not Recovered/Not Resolved]
  - Anxiety [Unknown]
  - Muscle twitching [Unknown]
  - Tremor [Not Recovered/Not Resolved]
  - Constipation [Recovered/Resolved]
  - On and off phenomenon [Unknown]
  - Drug ineffective [Not Recovered/Not Resolved]
  - Product quality issue [Unknown]
  - Muscle spasms [Not Recovered/Not Resolved]
  - Device occlusion [Not Recovered/Not Resolved]
  - Device use error [Unknown]
  - Freezing phenomenon [Not Recovered/Not Resolved]
  - Device issue [Unknown]

NARRATIVE: CASE EVENT DATE: 20200824
